FAERS Safety Report 11192576 (Version 7)
Quarter: 2016Q1

REPORT INFORMATION
  Report Type: Spontaneous
  Country: US (occurrence: US)
  Receive Date: 20150616
  Receipt Date: 20160217
  Transmission Date: 20160525
  Serious: Yes (Other)
  Sender: FDA-Public Use
  Company Number: US-PFIZER INC-2015196373

PATIENT
  Age: 91 Year
  Sex: Female
  Weight: 61 kg

DRUGS (8)
  1. IBRANCE [Suspect]
     Active Substance: PALBOCICLIB
     Dosage: 100 MG, CYCLIC (1-21 Q 28 DAYS)
     Route: 048
     Dates: start: 20150520
  2. IBRANCE [Suspect]
     Active Substance: PALBOCICLIB
     Dosage: 75 MG, 1X/DAY
     Route: 048
     Dates: start: 20150520, end: 20160121
  3. IBRANCE [Suspect]
     Active Substance: PALBOCICLIB
     Indication: BREAST CANCER STAGE IV
     Dosage: 125 MG, CYCLIC (D1-D21Q 28D)
     Route: 048
     Dates: start: 20150520, end: 20150609
  4. IBRANCE [Suspect]
     Active Substance: PALBOCICLIB
     Dosage: 100 MG, CYCLIC (DAY 1-21 Q 28 DAYS)
     Route: 048
     Dates: start: 20150520
  5. IBRANCE [Suspect]
     Active Substance: PALBOCICLIB
     Dosage: 100 MG, CYCLIC (DAY 1-21 Q 28 DAYS)
     Route: 048
     Dates: start: 20150520
  6. IBRANCE [Suspect]
     Active Substance: PALBOCICLIB
     Dosage: 100 MG, DAILY
     Route: 048
  7. IBRANCE [Suspect]
     Active Substance: PALBOCICLIB
     Dosage: 75 MG, (1-21 EVERY 28 DAYS)
     Route: 048
     Dates: start: 2015
  8. LETROZOLE. [Concomitant]
     Active Substance: LETROZOLE
     Dosage: UNK

REACTIONS (20)
  - Weight decreased [Unknown]
  - Dizziness [Unknown]
  - Headache [Recovered/Resolved]
  - Head discomfort [Unknown]
  - Epistaxis [Recovered/Resolved]
  - Pyrexia [Unknown]
  - Malaise [Unknown]
  - Decreased appetite [Unknown]
  - Chest discomfort [Unknown]
  - Dyspnoea [Unknown]
  - Eye discharge [Unknown]
  - Asthenia [Unknown]
  - Nausea [Unknown]
  - Rhinorrhoea [Unknown]
  - Back pain [Unknown]
  - Musculoskeletal pain [Unknown]
  - Feeling cold [Unknown]
  - Laboratory test abnormal [Not Recovered/Not Resolved]
  - Dysgeusia [Unknown]
  - Arthralgia [Unknown]

NARRATIVE: CASE EVENT DATE: 20150609
